FAERS Safety Report 7253261-8 (Version None)
Quarter: 2011Q1

REPORT INFORMATION
  Report Type: 
  Country: None (occurrence: None)
  Receive Date: 20110129
  Receipt Date: 20100217
  Transmission Date: 20110831
  Serious: No
  Sender: FDA-Public Use
  Company Number: US-ABBOTT-10P-163-0627824-00

PATIENT
  Sex: Female
  Weight: 99.88 kg

DRUGS (8)
  1. ASPIRIN [Concomitant]
     Indication: PAIN
  2. UNKNOWN RED PILL [Concomitant]
     Indication: RHEUMATOID ARTHRITIS
  3. HUMIRA [Suspect]
     Indication: RHEUMATOID ARTHRITIS
     Route: 058
  4. METHOTREXATE [Concomitant]
     Indication: RHEUMATOID ARTHRITIS
  5. ALEVE [Concomitant]
     Indication: INFLAMMATION
  6. VICODIN [Concomitant]
     Indication: PAIN
  7. ENBREL [Concomitant]
     Indication: RHEUMATOID ARTHRITIS
  8. HUMIRA [Suspect]
     Route: 058

REACTIONS (3)
  - RHEUMATOID ARTHRITIS [None]
  - PAIN [None]
  - JOINT SWELLING [None]
